FAERS Safety Report 7813647-7 (Version None)
Quarter: 2011Q4

REPORT INFORMATION
  Report Type: 
  Country: None (occurrence: None)
  Receive Date: 20111014
  Receipt Date: 20090924
  Transmission Date: 20120403
  Serious: No
  Sender: FDA-Public Use
  Company Number: 2009BI031021

PATIENT
  Sex: Female

DRUGS (5)
  1. GABAPENTIN [Concomitant]
  2. TYSABRI [Suspect]
     Indication: MULTIPLE SCLEROSIS
     Route: 042
     Dates: start: 20090810, end: 20091001
  3. BACLOFEN [Concomitant]
  4. AVONEX [Concomitant]
     Indication: MULTIPLE SCLEROSIS
     Route: 030
  5. MS THERAPIES NOS [Concomitant]
     Indication: MULTIPLE SCLEROSIS

REACTIONS (11)
  - INSOMNIA [None]
  - URTICARIA [None]
  - ANTI-THYROID ANTIBODY POSITIVE [None]
  - DYSPNOEA [None]
  - GENERAL SYMPTOM [None]
  - HYPERSENSITIVITY [None]
  - DRY MOUTH [None]
  - DRUG SPECIFIC ANTIBODY PRESENT [None]
  - GENERALISED ERYTHEMA [None]
  - OEDEMA PERIPHERAL [None]
  - ANTIBODY TEST POSITIVE [None]
